FAERS Safety Report 8967687 (Version 2)
Quarter: 2013Q1

REPORT INFORMATION
  Report Type: Spontaneous
  Country: DE (occurrence: None)
  Receive Date: 20121207
  Receipt Date: 20121220
  Transmission Date: 20140127
  Serious: Yes (Other)
  Sender: FDA-Public Use
  Company Number: 2012-21679

PATIENT
  Sex: 0
  Weight: 4.9 kg

DRUGS (1)
  1. TRAMADOL HYDROCHLORIDE [Suspect]
     Indication: FOETAL EXPOSURE DURING PREGNANCY
     Route: 064

REACTIONS (9)
  - Insomnia [None]
  - Drug withdrawal syndrome neonatal [None]
  - Tremor neonatal [None]
  - Neonatal disorder [None]
  - Maternal drugs affecting foetus [None]
  - Foetal macrosomia [None]
  - Caesarean section [None]
  - Premature baby [None]
  - Analgesic drug level above therapeutic [None]
